FAERS Safety Report 19205275 (Version 1)
Quarter: 2021Q2

REPORT INFORMATION
  Report Type: Spontaneous
  Country: US (occurrence: US)
  Receive Date: 20210501
  Receipt Date: 20210501
  Transmission Date: 20210717
  Serious: Yes (Other)
  Sender: FDA-Public Use
  Company Number: None

PATIENT
  Age: 47 Year
  Sex: Female
  Weight: 121.5 kg

DRUGS (16)
  1. EMGALITY [Suspect]
     Active Substance: GALCANEZUMAB-GNLM
     Indication: MIGRAINE
     Dosage: ?          OTHER FREQUENCY:MONTHLY;?
     Route: 058
     Dates: start: 20200301, end: 20210501
  2. ZINC. [Concomitant]
     Active Substance: ZINC
  3. DUONEB [Concomitant]
     Active Substance: ALBUTEROL SULFATE\IPRATROPIUM BROMIDE
  4. TUMERIC [Concomitant]
     Active Substance: HERBALS\TURMERIC
  5. PERCOCET [Concomitant]
     Active Substance: ACETAMINOPHEN\OXYCODONE HYDROCHLORIDE
  6. TINAZIDINE [Concomitant]
     Active Substance: TIZANIDINE
  7. FLONASE [Concomitant]
     Active Substance: FLUTICASONE PROPIONATE
  8. COMBIVENT [Concomitant]
     Active Substance: ALBUTEROL SULFATE\IPRATROPIUM BROMIDE
  9. VITAMIN D [Concomitant]
     Active Substance: VITAMIN D NOS
  10. MULTIVITAMIN [Concomitant]
     Active Substance: VITAMINS
  11. BUPAP [Concomitant]
     Active Substance: ACETAMINOPHEN\BUTALBITAL
  12. MUCINEX [Concomitant]
     Active Substance: GUAIFENESIN
  13. BOSWEILLA [Concomitant]
  14. SOLITOT [Concomitant]
  15. UBREVLY [Concomitant]
  16. QUERCETIN [Concomitant]
     Active Substance: QUERCETIN

REACTIONS (2)
  - Dyspnoea [None]
  - Urticaria [None]

NARRATIVE: CASE EVENT DATE: 20210430
